FAERS Safety Report 5772961-X (Version None)
Quarter: 2008Q2

REPORT INFORMATION
  Report Type: 
  Country: None (occurrence: None)
  Receive Date: 20080611
  Receipt Date: 20080522
  Transmission Date: 20081010
  Serious: Yes (Hospitalization)
  Sender: FDA-Public Use
  Company Number: 1-16178411

PATIENT
  Age: 61 Year
  Sex: Female
  Weight: 113.3993 kg

DRUGS (13)
  1. FENTANYL TRANSDERMAL SYSTEM [Suspect]
     Indication: DIABETIC NEUROPATHY
     Dosage: ONE PATCH EVERY 72 HRS, TRANSDERMAL
     Route: 062
     Dates: start: 20040101, end: 20080520
  2. ACTIVELLA (ESTRADIOL, MORETHINDRONE ACETATE) [Concomitant]
  3. ALTACE [Concomitant]
  4. ARICEPT [Concomitant]
  5. PLAVIX [Concomitant]
  6. HUMALOG PEN (INSULIN LISPRO) SLIDING SCALE [Concomitant]
  7. LANTUS (INSULIN GLARGANE) [Concomitant]
  8. GABAPENTIN [Concomitant]
  9. LABETALOL HCL [Concomitant]
  10. SIMVASTATIN [Concomitant]
  11. ASPIRIN [Concomitant]
  12. MULTI-VITAMIN [Concomitant]
  13. UNSPECIFIED COLD AND ALLERGY MEDICATION [Concomitant]

REACTIONS (11)
  - ABDOMINAL PAIN [None]
  - APHASIA [None]
  - ASTHENIA [None]
  - CONFUSIONAL STATE [None]
  - CONSTIPATION [None]
  - DIZZINESS [None]
  - INSOMNIA [None]
  - NAUSEA [None]
  - OVERDOSE [None]
  - SOMNOLENCE [None]
  - UNRESPONSIVE TO STIMULI [None]
